FAERS Safety Report 17041518 (Version 1)
Quarter: 2019Q4

REPORT INFORMATION
  Report Type: Spontaneous
  Country: GB (occurrence: GB)
  Receive Date: 20191118
  Receipt Date: 20191118
  Transmission Date: 20200122
  Serious: Yes (Death, Other)
  Sender: FDA-Public Use
  Company Number: GB-TEVA-2019-GB-1138260

PATIENT
  Age: 77 Year
  Sex: Male
  Weight: 82.8 kg

DRUGS (8)
  1. IBRUTINIB [Concomitant]
     Active Substance: IBRUTINIB
     Indication: LYMPHOMA
  2. LANSOPRAZOLE. [Concomitant]
     Active Substance: LANSOPRAZOLE
  3. SIMVASTATIN. [Concomitant]
     Active Substance: SIMVASTATIN
  4. ACETYLSALICYLIC ACID [Concomitant]
     Active Substance: ASPIRIN
  5. FINASTERIDE. [Concomitant]
     Active Substance: FINASTERIDE
  6. METHYLPREDNISOLONE. [Suspect]
     Active Substance: METHYLPREDNISOLONE
     Indication: MANTLE CELL LYMPHOMA RECURRENT
     Dosage: 1 G
     Route: 042
     Dates: start: 20190426, end: 20190427
  7. DILTIAZEM. [Concomitant]
     Active Substance: DILTIAZEM
  8. TAMSULOSIN [Concomitant]
     Active Substance: TAMSULOSIN

REACTIONS (2)
  - Tumour lysis syndrome [Fatal]
  - Product dose omission [Fatal]

NARRATIVE: CASE EVENT DATE: 20190426
